FAERS Safety Report 5154256-0 (Version None)
Quarter: 2006Q4

REPORT INFORMATION
  Report Type: 
  Country: None (occurrence: None)
  Receive Date: 20061120
  Receipt Date: 20061107
  Transmission Date: 20070319
  Serious: Yes (Disabling)
  Sender: FDA-Public Use
  Company Number: DK-ELI_LILLY_AND_COMPANY-DK200611001051

PATIENT
  Age: 36 Year
  Sex: Female
  Weight: 68 kg

DRUGS (1)
  1. DULOXETINE HYDROCHLORIDE [Suspect]
     Indication: DEPRESSION
     Dosage: 30 MG, DAILY (1/D)
     Route: 048
     Dates: start: 20060203, end: 20060418

REACTIONS (7)
  - BLOOD THYROID STIMULATING HORMONE INCREASED [None]
  - BURNING SENSATION [None]
  - CONSTIPATION [None]
  - FATIGUE [None]
  - FLATULENCE [None]
  - HYPOTHYROIDISM [None]
  - WEIGHT INCREASED [None]
